FAERS Safety Report 10102997 (Version 1)
Quarter: 2014Q2

REPORT INFORMATION
  Report Type: Spontaneous
  Country: US (occurrence: US)
  Receive Date: 20140424
  Receipt Date: 20140424
  Transmission Date: 20141212
  Serious: No
  Sender: FDA-Public Use
  Company Number: US-BRISTOL-MYERS SQUIBB COMPANY-20045779

PATIENT
  Age: 64 Year
  Sex: Male
  Weight: 81.63 kg

DRUGS (14)
  1. ELIQUIS [Suspect]
     Dates: start: 20131108
  2. LABETALOL [Concomitant]
  3. POTASSIUM CITRATE [Concomitant]
  4. SODIUM BICARBONATE [Concomitant]
     Dosage: 2 PILLS BEFORE MEALS
  5. HYDROCORTISONE [Concomitant]
     Indication: BACK PAIN
  6. NAPROSYN [Concomitant]
  7. CETIRIZINE [Concomitant]
     Dosage: NASAL SPRAY
  8. RHINOCORT [Concomitant]
  9. RANITIDINE [Concomitant]
  10. SIMETHICONE [Concomitant]
     Indication: FLATULENCE
  11. GLUCOSAMINE+CHONDROITINE+OMEGA 3 [Concomitant]
  12. COLCRYS [Concomitant]
  13. PROBENECID [Concomitant]
  14. PANTOPRAZOLE [Concomitant]

REACTIONS (1)
  - Vitamin D decreased [Unknown]
